FAERS Safety Report 8877233 (Version 1)
Quarter: 2012Q4

REPORT INFORMATION
  Report Type: 
  Country: US (occurrence: US)
  Receive Date: 20121023
  Receipt Date: 20121023
  Transmission Date: 20130627
  Serious: No
  Sender: FDA-Public Use
  Company Number: US-AMGEN-USASP2012058500

PATIENT
  Age: 47 Year
  Sex: Female
  Weight: 56.24 kg

DRUGS (4)
  1. ENBREL [Suspect]
     Indication: PRODUCT USED FOR UNKNOWN INDICATION
     Dosage: 50 mg, qwk
     Route: 058
  2. PLAQUENIL                          /00072602/ [Concomitant]
     Dosage: 200 mg, UNK
  3. BABY ASPIRIN [Concomitant]
     Dosage: 81 mg, UNK
  4. XYZAL [Concomitant]
     Dosage: 5 mg, UNK

REACTIONS (1)
  - Injection site pain [Unknown]
